FAERS Safety Report 5399162-1 (Version None)
Quarter: 2007Q3

REPORT INFORMATION
  Report Type: 
  Country: None (occurrence: None)
  Receive Date: 20070727
  Receipt Date: 20070719
  Transmission Date: 20080115
  Serious: Yes (Hospitalization)
  Sender: FDA-Public Use
  Company Number: US-ELI_LILLY_AND_COMPANY-US200706005051

PATIENT
  Age: 46 Year
  Sex: Male

DRUGS (1)
  1. HUMULIN 70/30 [Suspect]
     Indication: DIABETES MELLITUS

REACTIONS (4)
  - CARDIAC FAILURE CONGESTIVE [None]
  - LUNG DISORDER [None]
  - MYOCARDIAL INFARCTION [None]
  - PNEUMONIA [None]
